FAERS Safety Report 12852414 (Version 1)
Quarter: 2016Q4

REPORT INFORMATION
  Report Type: Spontaneous
  Country: US (occurrence: US)
  Receive Date: 20161017
  Receipt Date: 20161017
  Transmission Date: 20170207
  Serious: Yes (Life-Threatening, Disabling)
  Sender: FDA-Public Use
  Company Number: None

PATIENT
  Age: 63 Year
  Sex: Female
  Weight: 99.79 kg

DRUGS (9)
  1. RISPERIDAL [Suspect]
     Active Substance: RISPERIDONE
     Indication: SCHIZOPHRENIA
     Route: 048
     Dates: end: 2015
  2. LOXAPINE. [Concomitant]
     Active Substance: LOXAPINE
  3. ALBUTEROL. [Concomitant]
     Active Substance: ALBUTEROL
  4. BENZTROPINE [Concomitant]
     Active Substance: BENZTROPINE
  5. LOSARTAN POTASSIUM. [Concomitant]
     Active Substance: LOSARTAN POTASSIUM
  6. ABILIFY [Suspect]
     Active Substance: ARIPIPRAZOLE
     Indication: SCHIZOPHRENIA
     Route: 048
     Dates: start: 2016
  7. HCTZ [Concomitant]
     Active Substance: HYDROCHLOROTHIAZIDE
  8. B, 23,6 VITAMINS [Concomitant]
  9. CARDIA XT [Concomitant]

REACTIONS (4)
  - Mucosal dryness [None]
  - Dyspnoea [None]
  - Dysphagia [None]
  - Nasal mucosal disorder [None]

NARRATIVE: CASE EVENT DATE: 2015
